FAERS Safety Report 15680995 (Version 1)
Quarter: 2018Q4

REPORT INFORMATION
  Report Type: Spontaneous
  Country: US (occurrence: US)
  Receive Date: 20181120
  Receipt Date: 20181120
  Transmission Date: 20190205
  Serious: Yes (Other)
  Sender: FDA-Public Use
  Company Number: None

PATIENT

DRUGS (2)
  1. OXYCODONE TABLET [Suspect]
     Active Substance: OXYCODONE
  2. OXYCODONE TABLET [Suspect]
     Active Substance: OXYCODONE

REACTIONS (1)
  - Product identification number issue [None]

NARRATIVE: CASE EVENT DATE: 20181113
